FAERS Safety Report 24172789 (Version 1)
Quarter: 2024Q3

REPORT INFORMATION
  Report Type: Spontaneous
  Country: AU (occurrence: AU)
  Receive Date: 20240805
  Receipt Date: 20240805
  Transmission Date: 20241017
  Serious: Yes (Other)
  Sender: MYLAN
  Company Number: AU-MYLANLABS-2024M1071271

PATIENT
  Sex: Female

DRUGS (1)
  1. CLOZARIL [Suspect]
     Active Substance: CLOZAPINE
     Indication: Schizophrenia
     Dosage: 600 MILLIGRAM, QD (DAILY)
     Route: 065

REACTIONS (4)
  - Neutropenia [Unknown]
  - Self-destructive behaviour [Unknown]
  - Constipation [Unknown]
  - Blood glucose increased [Unknown]
